FAERS Safety Report 10240740 (Version 1)
Quarter: 2014Q2

REPORT INFORMATION
  Report Type: Report from Study
  Country: ES (occurrence: ES)
  Receive Date: 20140617
  Receipt Date: 20140617
  Transmission Date: 20141212
  Serious: Yes (Hospitalization)
  Sender: FDA-Public Use
  Company Number: ES-ROCHE-1417784

PATIENT
  Age: 59 Year
  Sex: Female
  Weight: 56.5 kg

DRUGS (3)
  1. CAPECITABINE [Suspect]
     Indication: BREAST CANCER METASTATIC
     Route: 065
     Dates: start: 20140321, end: 20140516
  2. TERIPARATIDE [Concomitant]
     Route: 065
     Dates: start: 20140310
  3. OMEPRAZOL [Concomitant]
     Route: 065
     Dates: start: 20140411

REACTIONS (1)
  - Enteritis [Recovering/Resolving]
